FAERS Safety Report 16101362 (Version 2)
Quarter: 2019Q1

REPORT INFORMATION
  Report Type: Report from Study
  Country: GB (occurrence: GB)
  Receive Date: 20190321
  Receipt Date: 20190328
  Transmission Date: 20190418
  Serious: Yes (Other)
  Sender: FDA-Public Use
  Company Number: PHHY2019GB064244

PATIENT
  Age: 44 Year
  Sex: Male

DRUGS (1)
  1. HYRIMOZ [Suspect]
     Active Substance: ADALIMUMAB-ADAZ
     Indication: ANKYLOSING SPONDYLITIS
     Dosage: 40 MG, Q2W, PRE FILLED SYRINGE
     Route: 058
     Dates: start: 20190315

REACTIONS (10)
  - Ill-defined disorder [Unknown]
  - Oropharyngeal pain [Unknown]
  - Injection site pain [Recovered/Resolved]
  - Pain in extremity [Unknown]
  - Lethargy [Recovered/Resolved]
  - Rhinorrhoea [Unknown]
  - Chest pain [Recovered/Resolved]
  - Cough [Unknown]
  - Influenza like illness [Unknown]
  - Anxiety [Unknown]

NARRATIVE: CASE EVENT DATE: 20190315
